FAERS Safety Report 4817020-5 (Version None)
Quarter: 2005Q4

REPORT INFORMATION
  Report Type: 
  Country: None (occurrence: None)
  Receive Date: 20051101
  Receipt Date: 20050908
  Transmission Date: 20060501
  Serious: Yes (Other)
  Sender: FDA-Public Use
  Company Number: JP-JPN-A20052151

PATIENT
  Age: 67 Year
  Sex: Female
  Weight: 54 kg

DRUGS (6)
  1. FLUTIDE DISKUS [Suspect]
     Indication: ASTHMA
     Dosage: 200MCG TWICE PER DAY
     Route: 055
     Dates: start: 20000906, end: 20050720
  2. ONON [Concomitant]
     Indication: ASTHMA
     Dosage: 4CAP PER DAY
     Route: 048
     Dates: start: 20010713
  3. GASTER [Concomitant]
     Indication: GASTRIC ULCER
     Dosage: 4TAB PER DAY
     Route: 048
     Dates: start: 20030911
  4. UNICON [Concomitant]
     Indication: ASTHMA
     Dosage: 1UNIT PER DAY
     Route: 048
     Dates: start: 19990104
  5. BISOLVON [Concomitant]
     Indication: ASTHMA
     Dosage: 4TAB PER DAY
     Route: 048
     Dates: start: 20001004
  6. MUCODYNE [Concomitant]
     Indication: ASTHMA
     Dosage: 4TAB PER DAY
     Route: 048

REACTIONS (2)
  - HAEMORRHAGE SUBEPIDERMAL [None]
  - PURPURA [None]
